FAERS Safety Report 10039312 (Version 1)
Quarter: 2014Q1

REPORT INFORMATION
  Report Type: Spontaneous
  Country: US (occurrence: None)
  Receive Date: 20140318
  Receipt Date: 20140318
  Transmission Date: 20141002
  Serious: Yes (Other)
  Sender: FDA-Public Use
  Company Number: 2013CT000116

PATIENT
  Age: 35 Year
  Sex: Female

DRUGS (3)
  1. KORLYM [Suspect]
     Indication: PITUITARY-DEPENDENT CUSHING^S SYNDROME
     Route: 048
     Dates: start: 20131028
  2. LASIX /00032601/ [Concomitant]
  3. POTASSIUM [Concomitant]

REACTIONS (3)
  - Weight increased [None]
  - Oedema peripheral [None]
  - Blood pressure increased [None]
